FAERS Safety Report 6201220-6 (Version None)
Quarter: 2009Q2

REPORT INFORMATION
  Report Type: 
  Country: None (occurrence: None)
  Receive Date: 20090526
  Receipt Date: 20090518
  Transmission Date: 20091009
  Serious: Yes (Other)
  Sender: FDA-Public Use
  Company Number: US-JNJFOC-20090505201

PATIENT
  Age: 40 Year
  Sex: Female

DRUGS (6)
  1. TOPAMAX [Suspect]
     Indication: ANXIETY
     Route: 048
  2. TOPAMAX [Suspect]
     Indication: BIPOLAR DISORDER
     Dosage: 50-75 MG
     Route: 048
  3. LITHIUM [Suspect]
     Indication: DRUG THERAPY
     Route: 065
  4. ABILIFY [Concomitant]
     Route: 065
  5. KLONOPIN [Concomitant]
     Route: 065
  6. THYROID TAB [Concomitant]
     Route: 065

REACTIONS (1)
  - HYPOTHYROIDISM [None]
